FAERS Safety Report 9787552 (Version 2)
Quarter: 2013Q4

REPORT INFORMATION
  Report Type: Spontaneous
  Country: IT (occurrence: IT)
  Receive Date: 20131230
  Receipt Date: 20131230
  Transmission Date: 20140711
  Serious: Yes (Other)
  Sender: FDA-Public Use
  Company Number: IT-ACCORD-020541

PATIENT
  Age: 67 Year
  Sex: Female

DRUGS (3)
  1. IRINOTECAN HYDROCHLORIDE [Suspect]
     Indication: PANCREATIC CARCINOMA
     Route: 042
     Dates: start: 20131009, end: 20131120
  2. LEDERFOLIN [Concomitant]
     Dosage: 175 MG, 1 AMPOULE
     Route: 042
     Dates: start: 20131009, end: 20131120
  3. FLUOROURACIL [Suspect]
     Indication: PANCREATIC CARCINOMA
     Route: 040
     Dates: start: 20131009, end: 20131120

REACTIONS (5)
  - Neutropenia [Recovering/Resolving]
  - Off label use [Unknown]
  - Blood creatinine increased [Recovering/Resolving]
  - Leukopenia [Recovering/Resolving]
  - Transaminases increased [Recovering/Resolving]
